FAERS Safety Report 25931333 (Version 1)
Quarter: 2025Q4

REPORT INFORMATION
  Report Type: Spontaneous
  Country: EU (occurrence: EU)
  Receive Date: 20251016
  Receipt Date: 20251016
  Transmission Date: 20260117
  Serious: Yes (Hospitalization)
  Sender: UCB
  Company Number: None

PATIENT
  Age: 78 Year
  Weight: 66 kg

DRUGS (19)
  1. LANSOPRAZOLE [Suspect]
     Active Substance: LANSOPRAZOLE
     Indication: Product used for unknown indication
     Dosage: 15 MILLIGRAM, ONCE DAILY (QD)
  2. ORITAVANCIN [Suspect]
     Active Substance: ORITAVANCIN
     Indication: Endocarditis
     Dosage: 1200 MILLIGRAM, ONCE DAILY (QD)
  3. ORITAVANCIN [Suspect]
     Active Substance: ORITAVANCIN
     Dosage: 1200 MILLIGRAM, ONCE DAILY (QD)
  4. DAPTOMYCIN [Suspect]
     Active Substance: DAPTOMYCIN
     Indication: Product used for unknown indication
     Dosage: UNK
  5. DAPTOMYCIN [Suspect]
     Active Substance: DAPTOMYCIN
     Dosage: UNK
  6. DAPTOMYCIN [Suspect]
     Active Substance: DAPTOMYCIN
     Dosage: 700 MILLIGRAM, ONCE DAILY (QD)
  7. OXAZEPAM [Suspect]
     Active Substance: OXAZEPAM
     Indication: Product used for unknown indication
     Dosage: 10 MILLIGRAM, ONCE DAILY (QD)
  8. ENOXAPARIN SODIUM [Suspect]
     Active Substance: ENOXAPARIN SODIUM
     Indication: Thrombosis prophylaxis
     Dosage: 4000 INTERNATIONAL UNIT
  9. CETIRIZINE HYDROCHLORIDE [Suspect]
     Active Substance: CETIRIZINE HYDROCHLORIDE
     Indication: Pruritus
     Dosage: 10 MILLIGRAM, ONCE DAILY (QD)
  10. EPOETIN ZETA [Suspect]
     Active Substance: ERYTHROPOIETIN
     Indication: Iron deficiency anaemia
     Dosage: 40000 INTERNATIONAL UNIT, ONE TIME DOSE
  11. IRON SUCROSE [Suspect]
     Active Substance: IRON SUCROSE
     Indication: Iron deficiency anaemia
     Dosage: 300 MILLIGRAM, EV 2 DAYS (QOD)
  12. SKENAN [Suspect]
     Active Substance: MORPHINE SULFATE
     Indication: Pain
     Dosage: 1 DOSAGE FORM
  13. MORPHINE SULFATE [Suspect]
     Active Substance: MORPHINE SULFATE
     Indication: Pain
     Dosage: 1 DOSAGE FORM, AS NEEDED (PRN)
  14. FUROSEMIDE [Concomitant]
     Active Substance: FUROSEMIDE
     Indication: Product used for unknown indication
     Dosage: UNK
  15. LORAZEPAM [Concomitant]
     Active Substance: LORAZEPAM
     Indication: Product used for unknown indication
     Dosage: UNK
  16. ACETYLLEUCINE [Concomitant]
     Active Substance: ACETYLLEUCINE
     Indication: Product used for unknown indication
     Dosage: UNK
  17. FOLIC ACID [Concomitant]
     Active Substance: FOLIC ACID
     Indication: Anaemia folate deficiency
     Dosage: 5 MILLIGRAM, ONCE DAILY (QD)
  18. POTASSIUM CHLORIDE [Concomitant]
     Active Substance: POTASSIUM CHLORIDE
     Indication: Hypokalaemia
     Dosage: UNK
  19. SPIRONOLACTONE [Concomitant]
     Active Substance: SPIRONOLACTONE
     Indication: Product used for unknown indication
     Dosage: 25 MILLIGRAM, ONCE DAILY (QD)

REACTIONS (1)
  - Agranulocytosis [Recovered/Resolved]
